FAERS Safety Report 21002443 (Version 1)
Quarter: 2022Q2

REPORT INFORMATION
  Report Type: Spontaneous
  Country: BE (occurrence: BE)
  Receive Date: 20220624
  Receipt Date: 20220624
  Transmission Date: 20220721
  Serious: Yes (Life-Threatening, Hospitalization, Other)
  Sender: FDA-Public Use
  Company Number: BE-CELLTRION INC.-2022BE009649

PATIENT

DRUGS (10)
  1. INFLIXIMAB [Suspect]
     Active Substance: INFLIXIMAB
     Indication: Neurosarcoidosis
     Dosage: 300 MG EVERY 8 WEEKS (STARTED WHEN PATIENT WAS 50 YEAR OLD)
     Route: 042
  2. MEDROL [Concomitant]
     Active Substance: METHYLPREDNISOLONE
     Dosage: 2MG ALTERNATE DAY
  3. STEOVIT FORTE [Concomitant]
     Dosage: 1DD
  4. LYRICA [Concomitant]
     Active Substance: PREGABALIN
     Dosage: 300 - 300
  5. PROPRANOLOL [Concomitant]
     Active Substance: PROPRANOLOL HYDROCHLORIDE
     Dosage: 160 MG 1DD
  6. PANTOPRAZOLE [Concomitant]
     Active Substance: PANTOPRAZOLE
     Dosage: 40 MG 1DD
  7. FOLIC ACID [Concomitant]
     Active Substance: FOLIC ACID
     Dosage: 4 MG 1DD
  8. CHOLECALCIFEROL [Concomitant]
     Active Substance: CHOLECALCIFEROL
     Dosage: 1/MONTH,
  9. XARELTO [Concomitant]
     Active Substance: RIVAROXABAN
     Dosage: 20MG 1DD
  10. ZALDIAR [Concomitant]
     Active Substance: ACETAMINOPHEN\TRAMADOL HYDROCHLORIDE
     Dosage: 2DD

REACTIONS (2)
  - Anaphylactic shock [Unknown]
  - Off label use [Unknown]

NARRATIVE: CASE EVENT DATE: 20220301
